FAERS Safety Report 7804851-2 (Version None)
Quarter: 2011Q4

REPORT INFORMATION
  Report Type: 
  Country: None (occurrence: None)
  Receive Date: 20111010
  Receipt Date: 20110926
  Transmission Date: 20120403
  Serious: Yes (Other)
  Sender: FDA-Public Use
  Company Number: US-SANOFI-AVENTIS-2011SA047632

PATIENT
  Sex: Female

DRUGS (3)
  1. ANTIGLAUCOMA PREPARATIONS AND MIOTICS [Concomitant]
     Indication: GLAUCOMA
     Route: 031
  2. LANTUS [Suspect]
     Route: 058
  3. SOLOSTAR [Suspect]
     Indication: DEVICE THERAPY

REACTIONS (3)
  - DEVICE MALFUNCTION [None]
  - PRODUCT QUALITY ISSUE [None]
  - DEVICE BREAKAGE [None]
